FAERS Safety Report 7894039-1 (Version None)
Quarter: 2011Q4

REPORT INFORMATION
  Report Type: 
  Country: None (occurrence: None)
  Receive Date: 20111104
  Receipt Date: 20111026
  Transmission Date: 20120403
  Serious: Yes (Other)
  Sender: FDA-Public Use
  Company Number: FR-JNJFOC-20110812877

PATIENT
  Age: 37 Year
  Sex: Female
  Weight: 60 kg

DRUGS (6)
  1. REMICADE [Suspect]
     Indication: CROHN'S DISEASE
     Dosage: 12TH INFUSION
     Route: 042
     Dates: start: 20110825
  2. REMICADE [Suspect]
     Dosage: 4TH TO 10TH INFUSIONS
     Route: 042
  3. REMICADE [Suspect]
     Dosage: 13TH INFUSION
     Route: 042
     Dates: start: 20111020
  4. REMICADE [Suspect]
     Dosage: 11TH INFUSION
     Route: 042
     Dates: start: 20110624
  5. REMICADE [Suspect]
     Dosage: AT ^S0, S2, S6^
     Route: 042
     Dates: start: 20100101
  6. SOLU-MEDROL [Concomitant]
     Indication: PREMEDICATION
     Dates: start: 20111020

REACTIONS (8)
  - ERYTHEMA [None]
  - SWELLING [None]
  - INFUSION RELATED REACTION [None]
  - HYPERSENSITIVITY [None]
  - FEELING HOT [None]
  - SENSATION OF PRESSURE [None]
  - PELVIC PAIN [None]
  - BACK PAIN [None]
